FAERS Safety Report 9160436 (Version 1)
Quarter: 2013Q1

REPORT INFORMATION
  Report Type: Spontaneous
  Country: US (occurrence: None)
  Receive Date: 20130219
  Receipt Date: 20130219
  Transmission Date: 20140127
  Serious: Yes (Hospitalization)
  Sender: FDA-Public Use
  Company Number: CIO13006002

PATIENT
  Age: 73 Year
  Sex: Male

DRUGS (3)
  1. METAMUCIL SUGAR-FREE SMOOTH TEXTURE, ORANGE FLAVOR (PSYLLIUM HYDROPHILIC MUCILLOID 3.4 G) POWDER FOR ORAL SOLUTION, 5.8G [Suspect]
     Indication: DIVERTICULUM
     Dosage: 1 TSP, IN 8 OUNCES OF WATER WHEN NEEDED, ORAL
  2. RAMIPRO (RAMIPRIL) [Concomitant]
  3. CRESTOR /01588601/ (ROSUVASTATIN) [Concomitant]

REACTIONS (2)
  - Chest pain [None]
  - Blood test abnormal [None]
